FAERS Safety Report 9018442 (Version 1)
Quarter: 2013Q1

REPORT INFORMATION
  Report Type: Spontaneous
  Country: US (occurrence: None)
  Receive Date: 20130111
  Receipt Date: 20130111
  Transmission Date: 20140127
  Serious: Yes (Disabling)
  Sender: FDA-Public Use
  Company Number: None

PATIENT
  Sex: Male
  Weight: 79.38 kg

DRUGS (1)
  1. RISPERDAL [Suspect]
     Indication: HALLUCINATION, AUDITORY
     Dosage: 25 MG TWICE A MONTH

REACTIONS (5)
  - Asthenia [None]
  - Sexual dysfunction [None]
  - Sleep disorder [None]
  - Vomiting [None]
  - Dyskinesia [None]
